FAERS Safety Report 9718536 (Version 11)
Quarter: 2020Q1

REPORT INFORMATION
  Report Type: Spontaneous
  Country: FR (occurrence: FR)
  Receive Date: 20131127
  Receipt Date: 20200101
  Transmission Date: 20200409
  Serious: Yes (Hospitalization, Disabling, Other)
  Sender: FDA-Public Use
  Company Number: FR-ELI_LILLY_AND_COMPANY-FR201311006410

PATIENT
  Age: 74 Year
  Sex: Female
  Weight: 75 kg

DRUGS (3)
  1. KARDEGIC [Concomitant]
     Active Substance: ASPIRIN DL-LYSINE
     Indication: PRODUCT USED FOR UNKNOWN INDICATION
     Dosage: UNK, UNKNOWN
     Route: 065
  2. PROZAC [Suspect]
     Active Substance: FLUOXETINE HYDROCHLORIDE
     Indication: DEPRESSION
     Dosage: 20 MG, EACH MORNING
     Route: 048
     Dates: start: 2005, end: 201307
  3. PROZAC [Suspect]
     Active Substance: FLUOXETINE HYDROCHLORIDE
     Dosage: 10 MG, QD
     Route: 065

REACTIONS (27)
  - Depression [Unknown]
  - Thrombosis [Not Recovered/Not Resolved]
  - Headache [Not Recovered/Not Resolved]
  - Neck pain [Unknown]
  - Muscle atrophy [Unknown]
  - Ocular vascular disorder [Unknown]
  - Complex regional pain syndrome [Not Recovered/Not Resolved]
  - Insomnia [Not Recovered/Not Resolved]
  - Saliva altered [Not Recovered/Not Resolved]
  - Malaise [Recovered/Resolved]
  - Cerebral atrophy [Not Recovered/Not Resolved]
  - Musculoskeletal disorder [Unknown]
  - Phlebitis [Unknown]
  - Blindness unilateral [Unknown]
  - Wrist fracture [Recovered/Resolved with Sequelae]
  - Loss of consciousness [Unknown]
  - Venous occlusion [Recovered/Resolved]
  - Cerebral disorder [Not Recovered/Not Resolved]
  - Troponin increased [Unknown]
  - Radius fracture [Unknown]
  - Pain [Not Recovered/Not Resolved]
  - Transient ischaemic attack [Unknown]
  - Hypertension [Not Recovered/Not Resolved]
  - Vein disorder [Not Recovered/Not Resolved]
  - Fall [Unknown]
  - Depression [Unknown]
  - Thrombosis [Unknown]

NARRATIVE: CASE EVENT DATE: 20081110
